FAERS Safety Report 5700574-4 (Version None)
Quarter: 2008Q2

REPORT INFORMATION
  Report Type: 
  Country: None (occurrence: None)
  Receive Date: 20080410
  Receipt Date: 20080331
  Transmission Date: 20081010
  Serious: Yes (Hospitalization)
  Sender: FDA-Public Use
  Company Number: FR-JNJFOC-20080402208

PATIENT
  Age: 84 Year
  Sex: Female

DRUGS (4)
  1. IXPRIM [Suspect]
     Indication: ESSENTIAL HYPERTENSION
     Route: 048
  2. SPASMINE JOLLY [Concomitant]
     Route: 065
  3. TRANXENE [Concomitant]
     Route: 065
  4. VISKALDIX [Concomitant]
     Route: 065

REACTIONS (9)
  - BLOOD CHLORIDE DECREASED [None]
  - BLOOD CREATINE PHOSPHOKINASE INCREASED [None]
  - BLOOD GLUCOSE INCREASED [None]
  - BLOOD POTASSIUM DECREASED [None]
  - FALL [None]
  - HAEMATOCRIT INCREASED [None]
  - HAEMOGLOBIN INCREASED [None]
  - HEART RATE INCREASED [None]
  - HYPOKALAEMIA [None]
